FAERS Safety Report 8910730 (Version 1)
Quarter: 2012Q4

REPORT INFORMATION
  Report Type: Spontaneous
  Country: FR (occurrence: None)
  Receive Date: 20121107
  Receipt Date: 20121107
  Transmission Date: 20130627
  Serious: Yes (Hospitalization)
  Sender: FDA-Public Use
  Company Number: 2012SP003489

PATIENT
  Age: 45 Year
  Sex: Male

DRUGS (10)
  1. FLUOROURACIL (FLUOROURACIL) [Suspect]
     Indication: MALIGNANT NEOPLASM OF ANTERIOR ASPECT OF EPIGLOTTIS
     Route: 042
     Dates: start: 20120823, end: 20120827
  2. CISPLATIN [Concomitant]
  3. TAXOTERE [Concomitant]
  4. THERALENE [Concomitant]
  5. AOTAL [Concomitant]
  6. VITAMIN B1 AND B6 [Concomitant]
  7. VALIUM /00266901 [Concomitant]
  8. OXYCONTIN [Concomitant]
  9. OXYNORM [Concomitant]
  10. STILNOX [Concomitant]

REACTIONS (7)
  - Ejection fraction decreased [None]
  - Hypotension [None]
  - Tachycardia [None]
  - Myocarditis [None]
  - Blood pH increased [None]
  - Ventricular hypokinesia [None]
  - Blood sodium decreased [None]
